FAERS Safety Report 6220143-X (Version None)
Quarter: 2009Q2

REPORT INFORMATION
  Report Type: 
  Country: None (occurrence: None)
  Receive Date: 20090609
  Receipt Date: 20090601
  Transmission Date: 20091009
  Serious: Yes (Death, Hospitalization)
  Sender: FDA-Public Use
  Company Number: GB-SANOFI-SYNTHELABO-A01200902523

PATIENT
  Age: 83 Year
  Sex: Female

DRUGS (3)
  1. TILDIEM SR [Concomitant]
     Indication: HYPERTENSION
     Route: 048
     Dates: start: 20070604
  2. FLECAINIDE ACETATE [Concomitant]
     Indication: ATRIAL FIBRILLATION
     Route: 048
     Dates: start: 20000929
  3. PLAVIX [Suspect]
     Indication: TRANSIENT ISCHAEMIC ATTACK
     Route: 048
     Dates: start: 20081105

REACTIONS (3)
  - OVERDOSE [None]
  - TRANSIENT ISCHAEMIC ATTACK [None]
  - TRAUMATIC INTRACRANIAL HAEMORRHAGE [None]
